FAERS Safety Report 17979297 (Version 4)
Quarter: 2022Q4

REPORT INFORMATION
  Report Type: Report from Study
  Country: US (occurrence: None)
  Receive Date: 20200703
  Receipt Date: 20221219
  Transmission Date: 20230113
  Serious: Yes (Hospitalization)
  Sender: FDA-Public Use
  Company Number: US-EISAI MEDICAL RESEARCH-EC-2019-055396

PATIENT
  Age: 79 Year
  Sex: Female
  Weight: 79.8 kg

DRUGS (29)
  1. LENVIMA [Suspect]
     Active Substance: LENVATINIB
     Indication: Thyroid cancer
     Route: 048
     Dates: start: 20190416, end: 2020
  2. LENVIMA [Suspect]
     Active Substance: LENVATINIB
     Route: 048
     Dates: start: 2020
  3. LENVIMA [Suspect]
     Active Substance: LENVATINIB
     Dosage: MISSED 1 DOSE DUE TO AE DIARRHEA
     Route: 048
     Dates: start: 20221001, end: 202212
  4. GLIPIZIDE [Concomitant]
     Active Substance: GLIPIZIDE
  5. FUROSEMIDE [Concomitant]
     Active Substance: FUROSEMIDE
  6. COLCHICINE [Concomitant]
     Active Substance: COLCHICINE
  7. HYDROCHLOROTHIAZIDE [Concomitant]
     Active Substance: HYDROCHLOROTHIAZIDE
  8. VITAMIN D [Concomitant]
     Active Substance: VITAMIN D NOS
  9. MUCINEX D 1200 [Concomitant]
  10. CHOLECALCIFEROL CRYSTALS [Concomitant]
  11. ASPIRIN [Concomitant]
     Active Substance: ASPIRIN
  12. IBUPROFEN [Concomitant]
     Active Substance: IBUPROFEN
  13. MECLIZINE [Concomitant]
     Active Substance: MECLIZINE HYDROCHLORIDE
  14. TRAMADOL HCL [Concomitant]
     Active Substance: TRAMADOL HYDROCHLORIDE
  15. SERTRALINE [Concomitant]
     Active Substance: SERTRALINE HYDROCHLORIDE
  16. METFORMIN HYDROCHLORIDE [Concomitant]
     Active Substance: METFORMIN HYDROCHLORIDE
  17. METAMUCIL [Concomitant]
     Active Substance: PLANTAGO SEED
  18. MINERALS\VITAMINS [Concomitant]
     Active Substance: MINERALS\VITAMINS
  19. KLOR-CON [Concomitant]
     Active Substance: POTASSIUM CHLORIDE
  20. PRAVASTATIN [Concomitant]
     Active Substance: PRAVASTATIN
  21. ZYRTEC [Concomitant]
     Active Substance: CETIRIZINE HYDROCHLORIDE
  22. ATENOLOL [Concomitant]
     Active Substance: ATENOLOL
  23. AMLODIPINE BESYLATE [Concomitant]
     Active Substance: AMLODIPINE BESYLATE
  24. SYNTHROID [Concomitant]
     Active Substance: LEVOTHYROXINE SODIUM
  25. LASIX [Concomitant]
     Active Substance: FUROSEMIDE
  26. LEVOCETIRIZINE DIHYDROCHLORIDE [Concomitant]
     Active Substance: LEVOCETIRIZINE DIHYDROCHLORIDE
  27. CYPROHEPTADINE HYDROCHLORIDE [Concomitant]
     Active Substance: CYPROHEPTADINE HYDROCHLORIDE
  28. IMODIUM A-D [Concomitant]
     Active Substance: LOPERAMIDE HYDROCHLORIDE
  29. FOLIC ACID [Concomitant]
     Active Substance: FOLIC ACID

REACTIONS (27)
  - Blood pressure increased [Not Recovered/Not Resolved]
  - Gastrointestinal disorder [Unknown]
  - Dizziness [Recovering/Resolving]
  - Headache [Unknown]
  - Nausea [Recovering/Resolving]
  - Malaise [Recovering/Resolving]
  - Abdominal tenderness [Unknown]
  - Fatigue [Recovering/Resolving]
  - Decreased appetite [Not Recovered/Not Resolved]
  - Oral pain [Recovering/Resolving]
  - Weight decreased [Not Recovered/Not Resolved]
  - Stomatitis [Unknown]
  - Dysphonia [Not Recovered/Not Resolved]
  - Cough [Unknown]
  - Vomiting [Unknown]
  - Dehydration [Unknown]
  - Large intestine polyp [Unknown]
  - Cholelithiasis [Unknown]
  - Lip pain [Unknown]
  - Diarrhoea [Recovering/Resolving]
  - Ageusia [Unknown]
  - Hypersensitivity [Unknown]
  - Tooth fracture [Not Recovered/Not Resolved]
  - Skin exfoliation [Unknown]
  - Tenderness [Unknown]
  - Laboratory test abnormal [Unknown]
  - Blood test abnormal [Unknown]

NARRATIVE: CASE EVENT DATE: 20190101
